FAERS Safety Report 23522884 (Version 2)
Quarter: 2024Q2

REPORT INFORMATION
  Report Type: Spontaneous
  Country: US (occurrence: US)
  Receive Date: 20240214
  Receipt Date: 20240425
  Transmission Date: 20240716
  Serious: No
  Sender: FDA-Public Use
  Company Number: US-BAYER-2024A020690

PATIENT
  Age: 61 Year
  Sex: Female

DRUGS (4)
  1. BETASERON [Suspect]
     Active Substance: INTERFERON BETA-1B
     Indication: Multiple sclerosis
     Dosage: WEEKS 1-2: 0.0625MG (0.25ML)
     Route: 058
     Dates: start: 20231106
  2. BETASERON [Suspect]
     Active Substance: INTERFERON BETA-1B
     Indication: Multiple sclerosis
     Dosage: WEEKS 3-4: 0.125MG (0.5ML)
     Route: 058
  3. BETASERON [Suspect]
     Active Substance: INTERFERON BETA-1B
     Indication: Multiple sclerosis
     Dosage: WEEKS 5-6: 0.1875MG (0.75ML)
     Route: 058
  4. BETASERON [Suspect]
     Active Substance: INTERFERON BETA-1B
     Indication: Multiple sclerosis
     Dosage: WEEKS 7 ON: 0.25MG (1ML)
     Route: 058

REACTIONS (5)
  - Fatigue [None]
  - Asthenia [None]
  - Dizziness [None]
  - Pain [None]
  - Headache [None]
